FAERS Safety Report 7299851 (Version 5)
Quarter: 2013Q1

REPORT INFORMATION
  Report Type: Spontaneous
  Country: US (occurrence: US)
  Receive Date: 20100301
  Receipt Date: 20130211
  Transmission Date: 20140127
  Serious: Yes (Hospitalization, Other)
  Sender: FDA-Public Use
  Company Number: US-BAYER-201014820NA

PATIENT
  Age: 20 Year
  Sex: Female
  Weight: 63 kg

DRUGS (2)
  1. YASMIN [Suspect]
     Indication: DYSMENORRHOEA
     Dosage: UNK
     Route: 048
     Dates: start: 20031002, end: 20050715
  2. YASMIN [Suspect]
     Indication: ORAL CONTRACEPTION

REACTIONS (5)
  - Blood pressure increased [Not Recovered/Not Resolved]
  - Pelvic adhesions [None]
  - Endometriosis [None]
  - Abnormal weight gain [None]
  - Cyst [None]
